APPROVED DRUG PRODUCT: QUETIAPINE FUMARATE
Active Ingredient: QUETIAPINE FUMARATE
Strength: EQ 200MG BASE
Dosage Form/Route: TABLET, EXTENDED RELEASE;ORAL
Application: A209497 | Product #002 | TE Code: AB
Applicant: ALIGNSCIENCE PHARMA INC
Approved: Sep 28, 2018 | RLD: No | RS: No | Type: RX